FAERS Safety Report 14827928 (Version 1)
Quarter: 2018Q2

REPORT INFORMATION
  Report Type: Report from Study
  Country: CA (occurrence: CA)
  Receive Date: 20180430
  Receipt Date: 20180430
  Transmission Date: 20180711
  Serious: Yes (Other)
  Sender: FDA-Public Use
  Company Number: CA-JNJFOC-20180432584

PATIENT
  Sex: Female
  Weight: 61.3 kg

DRUGS (7)
  1. REMICADE [Suspect]
     Active Substance: INFLIXIMAB
     Indication: RHEUMATOID ARTHRITIS
     Dosage: STRENGTH = 100 MG
     Route: 042
     Dates: start: 20140826
  2. GABAPENTIN. [Concomitant]
     Active Substance: GABAPENTIN
     Dosage: STRENGTH = 100 MG
     Route: 048
  3. TRI-CYCLEN LO [Concomitant]
     Active Substance: ETHINYL ESTRADIOL\NORGESTIMATE
     Dosage: STRENGTH = 0.025 MG
     Route: 048
  4. PREDNISONE. [Concomitant]
     Active Substance: PREDNISONE
     Dosage: STRENGTH = 5 MG
     Route: 048
  5. D-TABS [Concomitant]
     Active Substance: CHOLECALCIFEROL
     Dosage: STRENGTH = 10000 IU/KG
     Route: 048
  6. METOJECT [Concomitant]
     Active Substance: METHOTREXATE SODIUM
     Dosage: STRENGTH = 15 MG
     Route: 058
  7. EURO FOLIC [Concomitant]
     Active Substance: FOLIC ACID
     Dosage: STRENGTH = 5 MG
     Route: 048

REACTIONS (1)
  - Malignant melanoma [Unknown]
